FAERS Safety Report 4746638-3 (Version None)
Quarter: 2005Q3

REPORT INFORMATION
  Report Type: 
  Country: None (occurrence: None)
  Receive Date: 20050815
  Receipt Date: 20050804
  Transmission Date: 20060218
  Serious: Yes (Other)
  Sender: FDA-Public Use
  Company Number: 2005092452

PATIENT
  Age: 37 Year
  Sex: Female
  Weight: 46.7205 kg

DRUGS (9)
  1. SPIRONOLACTONE [Suspect]
     Indication: SWELLING
     Dosage: 100 MG (100 MG , 1 IN 1 D), ORAL
     Route: 048
     Dates: start: 19850101
  2. MORPHINE [Concomitant]
  3. THEOPHYLLINE [Concomitant]
  4. FLONASE [Concomitant]
  5. ADVAIR  (FLUTICASONE PROPIOANTE, SALMETEROL XINAFOATE) [Concomitant]
  6. LASIX [Concomitant]
  7. ALLERGY MEDICATION (ALLERGY MEDICATION) [Concomitant]
  8. DRISTAN (CHLORPHENAMINE MALETATE, PARACETAMOL, PHENYLEPHRINE HYDROCHLO [Concomitant]
  9. PREVACID [Concomitant]

REACTIONS (9)
  - ABASIA [None]
  - BLOOD CHOLESTEROL INCREASED [None]
  - LOWER LIMB FRACTURE [None]
  - MYOCARDIAL INFARCTION [None]
  - OSTEOPOROSIS [None]
  - RECURRENT CANCER [None]
  - ULCER HAEMORRHAGE [None]
  - URINARY INCONTINENCE [None]
  - UTERINE CANCER [None]
